FAERS Safety Report 10241965 (Version 2)
Quarter: 2014Q3

REPORT INFORMATION
  Report Type: Spontaneous
  Country: US (occurrence: None)
  Receive Date: 20140613
  Receipt Date: 20140710
  Transmission Date: 20150326
  Serious: Yes (Other)
  Sender: FDA-Public Use
  Company Number: IPC201405-000292

PATIENT
  Age: 63 Year
  Sex: Male

DRUGS (17)
  1. INSULIN (INSULIN) [Concomitant]
     Active Substance: INSULIN NOS
  2. SOMA [Concomitant]
     Active Substance: CARISOPRODOL
  3. AZOPT (BRINZOLAMIDE) (BRINZOLAMIDE) [Concomitant]
  4. PAXIL (PAROXETINE HYDROCHLORIDE) (PAROXETINE HYDROCHLORIDE) [Concomitant]
  5. FOLIC ACID (FOLIC ACID) [Concomitant]
     Active Substance: FOLIC ACID
  6. LANTUS (INSULIN) [Concomitant]
  7. METHOTREXATE (METHOTREXATE) [Concomitant]
     Active Substance: METHOTREXATE
  8. HUMULIN (INSULIN) (INSULIN) [Concomitant]
  9. RANITIDINE [Concomitant]
     Active Substance: RANITIDINE\RANITIDINE HYDROCHLORIDE
  10. LOVASTATIN (LOVASTATIN) [Concomitant]
     Active Substance: LOVASTATIN
  11. CLONIDINE (CLONIDINE) [Concomitant]
     Active Substance: CLONIDINE
  12. HYDROXYCHLOROQUINE SULFATE (HYDROXYCHLOROQUINE SULFATE) (HYDROXYCHLOROQUINE SULFATE) [Suspect]
     Active Substance: HYDROXYCHLOROQUINE SULFATE
     Indication: RHEUMATOID ARTHRITIS
     Route: 048
     Dates: start: 20131201, end: 20140525
  13. ALPRAZOLAM (ALPRAZOLAM) [Concomitant]
     Active Substance: ALPRAZOLAM
  14. SPIRONOLACTONE (SPIRONOLACTONE) [Concomitant]
     Active Substance: SPIRONOLACTONE
  15. PREDNISOLONE (PREDNISOLONE) [Concomitant]
     Active Substance: PREDNISOLONE
  16. LEVOTHYROXIN (LEVOTHYROXINE) [Concomitant]
  17. FUROSEMIDE. [Concomitant]
     Active Substance: FUROSEMIDE

REACTIONS (2)
  - Eye pain [None]
  - Intraocular pressure increased [None]

NARRATIVE: CASE EVENT DATE: 20140522
